FAERS Safety Report 18454486 (Version 2)
Quarter: 2020Q4

REPORT INFORMATION
  Report Type: Spontaneous
  Country: SE (occurrence: SE)
  Receive Date: 20201102
  Receipt Date: 20201105
  Transmission Date: 20210114
  Serious: Yes (Life-Threatening, Hospitalization, Disabling)
  Sender: FDA-Public Use
  Company Number: SE-JNJFOC-20201046306

PATIENT
  Age: 77 Year
  Sex: Male
  Weight: 80 kg

DRUGS (1)
  1. RISPERDAL [Suspect]
     Active Substance: RISPERIDONE
     Indication: PRODUCT USED FOR UNKNOWN INDICATION
     Dosage: HALF DOSE THE FIRST WEEK THEREAFTER A WHOLE TABLET
     Route: 048
     Dates: start: 202002, end: 20200910

REACTIONS (4)
  - Peripheral swelling [Recovering/Resolving]
  - Parkinsonism [Recovering/Resolving]
  - Urinary incontinence [Recovering/Resolving]
  - Neck pain [Recovering/Resolving]

NARRATIVE: CASE EVENT DATE: 202006
